FAERS Safety Report 8075658-9 (Version None)
Quarter: 2012Q1

REPORT INFORMATION
  Report Type: 
  Country: None (occurrence: None)
  Receive Date: 20120127
  Receipt Date: 20120124
  Transmission Date: 20120608
  Serious: Yes (Death, Hospitalization)
  Sender: FDA-Public Use
  Company Number: FR-SANOFI-AVENTIS-2012SA004962

PATIENT
  Age: 65 Year
  Sex: Male

DRUGS (14)
  1. LOVENOX [Suspect]
     Route: 048
     Dates: start: 20111107, end: 20111125
  2. SUNITINIB MALATE [Suspect]
     Indication: RENAL CANCER METASTATIC
     Dosage: 4 WEEKS OF TREATMENT OVER 6 WEEKS.
     Route: 048
     Dates: start: 20101020
  3. SUNITINIB MALATE [Suspect]
     Dosage: 4 WEEKS OF TREATMENT OVER 6 WEEKS.
     Route: 048
     Dates: start: 20111123
  4. HYPERIUM [Suspect]
     Route: 048
     Dates: start: 20100901
  5. POTASSIUM CHLORIDE [Concomitant]
     Route: 048
  6. LANSOPRAZOLE [Suspect]
     Route: 048
     Dates: start: 20100901
  7. HYZAAR [Suspect]
     Route: 048
     Dates: start: 20100901, end: 20110201
  8. BUDESONIDE/FORMOTEROL FUMARATE [Suspect]
     Route: 055
     Dates: start: 20100901
  9. AMLODIPINE BESYLATE [Suspect]
     Route: 048
     Dates: start: 20101201
  10. SPASFON-LYOC [Concomitant]
     Route: 048
  11. MOVIPREP [Concomitant]
     Indication: CONSTIPATION
     Route: 048
  12. LOSARTAN POTASSIUM AND HYDROCHLOROTHIAZIDE [Suspect]
     Route: 048
     Dates: start: 20110201
  13. ACETAMINOPHEN [Concomitant]
     Route: 065
  14. TRAMADOL HCL [Concomitant]
     Indication: PAIN
     Route: 048

REACTIONS (1)
  - AORTIC DISSECTION [None]
